FAERS Safety Report 25256908 (Version 1)
Quarter: 2025Q2

REPORT INFORMATION
  Report Type: Spontaneous
  Country: US (occurrence: None)
  Receive Date: 20250430
  Receipt Date: 20250430
  Transmission Date: 20250717
  Serious: Yes (unspecified)
  Sender: FDA-CTU
  Company Number: None

PATIENT
  Sex: Female

DRUGS (1)
  1. REMICADE [Suspect]
     Active Substance: INFLIXIMAB
     Indication: Colitis ulcerative
     Dates: start: 20250410, end: 20250424

REACTIONS (8)
  - Infusion related reaction [None]
  - Diarrhoea [None]
  - Nausea [None]
  - Flushing [None]
  - Tachycardia [None]
  - Chest discomfort [None]
  - Blood pressure decreased [None]
  - Therapy interrupted [None]

NARRATIVE: CASE EVENT DATE: 20250424
